FAERS Safety Report 15833069 (Version 2)
Quarter: 2019Q1

REPORT INFORMATION
  Report Type: Spontaneous
  Country: EG (occurrence: EG)
  Receive Date: 20190116
  Receipt Date: 20190213
  Transmission Date: 20190417
  Serious: Yes (Other)
  Sender: FDA-Public Use
  Company Number: EG-GLAXOSMITHKLINE-EG2019005499

PATIENT
  Age: 18 Month
  Sex: Female

DRUGS (2)
  1. ANTINAL [Concomitant]
     Indication: DIARRHOEA
     Dosage: UNK
     Route: 065
  2. CATAFLY [Suspect]
     Active Substance: DICLOFENAC
     Indication: PYREXIA
     Dosage: 10 TIMES PER DAY EVERY 2 HRS OVERDOSE
     Route: 048
     Dates: start: 20190109, end: 20190109

REACTIONS (1)
  - Haematemesis [Recovered/Resolved]

NARRATIVE: CASE EVENT DATE: 20190109
